FAERS Safety Report 5850180-6 (Version None)
Quarter: 2008Q3

REPORT INFORMATION
  Report Type: 
  Country: None (occurrence: None)
  Receive Date: 20080819
  Receipt Date: 20080805
  Transmission Date: 20090109
  Serious: No
  Sender: FDA-Public Use
  Company Number: US-BOEHRINGER INGELHEIM GMBH, GERMANY-2008-BP-12309BP

PATIENT
  Age: 66 Year
  Sex: Female

DRUGS (4)
  1. ZANTAC 150 [Suspect]
     Indication: ERUCTATION
     Route: 048
     Dates: start: 20080530
  2. ZANTAC 150 [Suspect]
     Indication: FLATULENCE
  3. BP MEDICATION (UNSPECIFIED) [Concomitant]
     Indication: BLOOD PRESSURE
  4. CALCIUM [Concomitant]

REACTIONS (1)
  - VAGINAL HAEMORRHAGE [None]
